FAERS Safety Report 5285064-8 (Version None)
Quarter: 2007Q1

REPORT INFORMATION
  Report Type: 
  Country: None (occurrence: None)
  Receive Date: 20061229
  Receipt Date: 20060905
  Transmission Date: 20070707
  Serious: Yes (Other)
  Sender: FDA-Public Use
  Company Number: 2006UW17435

PATIENT
  Age: 85 Year
  Sex: Female
  Weight: 88.45 kg

DRUGS (3)
  1. CRESTOR [Suspect]
     Indication: BLOOD CHOLESTEROL INCREASED
     Dosage: 5 MG PO
     Route: 048
     Dates: start: 20060801, end: 20060905
  2. TOPROL-XL [Concomitant]
  3. SYNTHROID [Concomitant]

REACTIONS (1)
  - HYPOAESTHESIA [None]
